FAERS Safety Report 19216232 (Version 1)
Quarter: 2021Q2

REPORT INFORMATION
  Report Type: Spontaneous
  Country: US (occurrence: US)
  Receive Date: 20210505
  Receipt Date: 20210505
  Transmission Date: 20210717
  Serious: Yes (Life-Threatening, Hospitalization, Other)
  Sender: FDA-Public Use
  Company Number: US-LUPIN PHARMACEUTICALS INC.-2021-06079

PATIENT
  Age: 12 Year
  Sex: Female

DRUGS (5)
  1. AMLODIPINE [Suspect]
     Active Substance: AMLODIPINE BESYLATE
     Indication: INTENTIONAL OVERDOSE
     Dosage: 900 MILLIGRAM
     Route: 048
  2. CALCIUM [Suspect]
     Active Substance: CALCIUM
     Indication: TOXICITY TO VARIOUS AGENTS
  3. INTRALIPID [Concomitant]
     Active Substance: EGG PHOSPHOLIPIDS\GLYCERIN\SOYBEAN OIL
     Indication: SHOCK
     Dosage: UNK
     Route: 065
  4. INTRALIPID [Concomitant]
     Active Substance: EGG PHOSPHOLIPIDS\GLYCERIN\SOYBEAN OIL
     Indication: TOXICITY TO VARIOUS AGENTS
  5. CALCIUM [Suspect]
     Active Substance: CALCIUM
     Indication: SHOCK
     Dosage: UNK
     Route: 065

REACTIONS (11)
  - Intentional overdose [Unknown]
  - Acute kidney injury [Recovered/Resolved with Sequelae]
  - Drug ineffective [Unknown]
  - Toxicity to various agents [Unknown]
  - Shock [Recovered/Resolved with Sequelae]
  - Metabolic acidosis [Recovered/Resolved with Sequelae]
  - Suicide attempt [Unknown]
  - Acute respiratory distress syndrome [Recovered/Resolved with Sequelae]
  - Mental status changes [Recovered/Resolved with Sequelae]
  - Respiratory acidosis [Recovered/Resolved with Sequelae]
  - Generalised tonic-clonic seizure [Recovered/Resolved with Sequelae]
